FAERS Safety Report 16896139 (Version 1)
Quarter: 2019Q4

REPORT INFORMATION
  Report Type: Spontaneous
  Country: US (occurrence: US)
  Receive Date: 20190815
  Receipt Date: 20190815
  Transmission Date: 20200122
  Serious: No
  Sender: FDA-Public Use
  Company Number: None

PATIENT
  Age: 68 Year
  Sex: Female

DRUGS (1)
  1. LEDIP/SOFOSB 90 - 400MG TAB (2X14) [Suspect]
     Active Substance: LEDIPASVIR\SOFOSBUVIR
     Dates: start: 201906

REACTIONS (2)
  - Vomiting [None]
  - Constipation [None]

NARRATIVE: CASE EVENT DATE: 20190815
